FAERS Safety Report 10483083 (Version 1)
Quarter: 2014Q3

REPORT INFORMATION
  Report Type: Report from Study
  Country: US (occurrence: US)
  Receive Date: 20140930
  Receipt Date: 20140930
  Transmission Date: 20150326
  Serious: Yes (Hospitalization, Other)
  Sender: FDA-Public Use
  Company Number: US-ROCHE-1467648

PATIENT
  Age: 10 Year
  Sex: Female
  Weight: 46.7 kg

DRUGS (14)
  1. NUTROPIN AQ [Suspect]
     Active Substance: SOMATROPIN
     Dosage: AT BEDTIME
     Route: 058
  2. NUTROPIN AQ [Suspect]
     Active Substance: SOMATROPIN
     Dosage: AT BEDTIME
     Route: 058
  3. FOLIC ACID. [Concomitant]
     Active Substance: FOLIC ACID
     Route: 065
  4. NUTROPIN AQ [Suspect]
     Active Substance: SOMATROPIN
     Indication: BODY HEIGHT BELOW NORMAL
     Route: 058
     Dates: start: 200812
  5. MEDROL [Concomitant]
     Active Substance: METHYLPREDNISOLONE
     Route: 048
  6. PREVACID [Concomitant]
     Active Substance: LANSOPRAZOLE
     Route: 048
  7. NUTROPIN AQ [Suspect]
     Active Substance: SOMATROPIN
     Route: 058
  8. NUTROPIN AQ [Suspect]
     Active Substance: SOMATROPIN
     Route: 058
     Dates: start: 20130611
  9. PLAQUENIL [Concomitant]
     Active Substance: HYDROXYCHLOROQUINE SULFATE
     Route: 048
  10. PLAQUENIL [Concomitant]
     Active Substance: HYDROXYCHLOROQUINE SULFATE
     Route: 048
  11. NUTROPIN AQ [Suspect]
     Active Substance: SOMATROPIN
     Route: 058
  12. LUPRON [Concomitant]
     Active Substance: LEUPROLIDE ACETATE
     Route: 030
     Dates: start: 201002, end: 201108
  13. NUTROPIN AQ [Suspect]
     Active Substance: SOMATROPIN
     Route: 058
  14. CYCLOSPORINE. [Concomitant]
     Active Substance: CYCLOSPORINE
     Route: 065

REACTIONS (7)
  - Pyrexia [Unknown]
  - Bone pain [Unknown]
  - Growth retardation [Unknown]
  - Drug dose omission [Unknown]
  - Pain [Unknown]
  - Gastroenteritis [Unknown]
  - Skin hyperpigmentation [Unknown]

NARRATIVE: CASE EVENT DATE: 200907
